FAERS Safety Report 12393506 (Version 1)
Quarter: 2016Q2

REPORT INFORMATION
  Report Type: Spontaneous
  Country: US (occurrence: None)
  Receive Date: 20160520
  Receipt Date: 20160520
  Transmission Date: 20160815
  Serious: Yes (Disabling, Other)
  Sender: FDA-Public Use
  Company Number: None

PATIENT
  Age: 53 Year
  Sex: Male
  Weight: 74.84 kg

DRUGS (2)
  1. CITALOPRAM, 20MG [Suspect]
     Active Substance: CITALOPRAM HYDROBROMIDE
  2. BAYER [Concomitant]
     Active Substance: ASPIRIN

REACTIONS (5)
  - Decreased appetite [None]
  - Vertigo [None]
  - Alopecia [None]
  - Weight increased [None]
  - Malaise [None]

NARRATIVE: CASE EVENT DATE: 20150826
